FAERS Safety Report 7441128-1 (Version None)
Quarter: 2011Q2

REPORT INFORMATION
  Report Type: 
  Country: None (occurrence: None)
  Receive Date: 20110427
  Receipt Date: 20110420
  Transmission Date: 20111010
  Serious: Yes (Hospitalization)
  Sender: FDA-Public Use
  Company Number: GB-BRISTOL-MYERS SQUIBB COMPANY-15440571

PATIENT
  Age: 75 Year
  Sex: Female
  Weight: 80 kg

DRUGS (24)
  1. STARIL TABS [Suspect]
     Indication: HYPERTENSION
     Dosage: DOSE TAKEN FOR NEARLY 20 YEARS.
     Route: 048
     Dates: start: 20100701, end: 20100701
  2. AMITRIPTYLINE HCL [Concomitant]
     Dosage: LAST ISSUSED:23FEB2011 1DF:2 TABS(10MG) QUANTITY:112
     Dates: start: 20060817
  3. ASPIRIN [Concomitant]
     Dosage: TABS 75MG LAST ISSUED:23FEB2011 1DF:1 TABS QUANTITY:56
     Dates: start: 20070618
  4. QUININE SULFATE [Concomitant]
     Dates: start: 20010706
  5. PARACETAMOL [Concomitant]
     Dates: start: 19991028
  6. OXYCODONE HCL [Concomitant]
     Dosage: 1DF:10MG
     Dates: start: 20080327
  7. CHLORHEXIDINE GLUCONATE [Concomitant]
  8. LACTULOSE [Concomitant]
     Dosage: DOSAGE:10ML AT NIGHT FORMULATION: ORAL SOL3.35G/5ML
     Route: 048
     Dates: start: 20080327
  9. DIPROBASE [Concomitant]
     Dosage: PUMP DISPENSOR CREAM LAST ISSUED:23FEB2011 QUANTITY:1*OP
     Dates: start: 20010608
  10. LEVOTHYROXINE SODIUM [Concomitant]
     Dates: start: 20010426
  11. HUMALOG [Concomitant]
     Dosage: DOSAGE:CARTRIDGE 3ML INJ 100UNITS/ML 1DF:2PUFFS
     Dates: start: 20020509
  12. SENNA [Concomitant]
     Dosage: 1DF:2TABS FORMULATION:7.5MG
     Dates: start: 20080327
  13. OMEPRAZOLE [Concomitant]
     Dates: start: 20080327
  14. GLYCERYL TRINITRATE [Concomitant]
     Dosage: DOSE: 200 DOSE CFC FREE PUMP SPRAY 400MCG/DOSE 1DF:2 PUFF
     Dates: start: 20060718
  15. BISOPROLOL FUMARATE [Concomitant]
     Dosage: TABS 1.25MG LAST ISSUED:23FEB2011 1DF:1 TABS QUANTITY:56
     Dates: start: 20090323
  16. CEPHALEXIN [Concomitant]
     Dosage: CAPS 250MG LAST ISSUED:23FEB2011 1DF:1 CAPS QUANTITY:56
     Dates: start: 20010806
  17. NYSTATIN [Concomitant]
  18. ATORVASTATIN [Concomitant]
     Dosage: TABS 40MG LAST ISSUED:23FEB2011 1DF:1 TABS QUANTITY:56
     Dates: start: 20070806
  19. DIAZEPAM [Concomitant]
     Dosage: TABS 5MG LAST ISSUED:23FEB2011 1DF:1 TABS QUANTITY:60
     Dates: start: 19991028
  20. NICORANDIL [Concomitant]
     Dates: start: 20090323
  21. LANTUS [Concomitant]
     Dosage: 1DF:CARTRIDGE 3MLINJ, 100UNITS/ML
     Dates: start: 20050103
  22. ISOSORBIDE MONONITRATE [Concomitant]
     Dosage: DOSAGE: 1 TAB AT 8:00AM AND 2PM
     Dates: start: 20100608
  23. STARIL TABS [Suspect]
     Indication: RENAL FAILURE
     Dosage: DOSE TAKEN FOR NEARLY 20 YEARS.
     Route: 048
     Dates: start: 20100701, end: 20100701
  24. FUROSEMIDE [Concomitant]
     Dosage: 1DF:ONE TAB FORMULATION:40MG
     Dates: start: 20090731

REACTIONS (2)
  - CARDIAC PACEMAKER INSERTION [None]
  - COUGH [None]
